FAERS Safety Report 10384485 (Version 3)
Quarter: 2014Q3

REPORT INFORMATION
  Report Type: Spontaneous
  Country: FR (occurrence: FR)
  Receive Date: 20140814
  Receipt Date: 20140917
  Transmission Date: 20150326
  Serious: Yes (Other)
  Sender: FDA-Public Use
  Company Number: CHPA2014FR009208

PATIENT
  Age: 27 Year
  Sex: Female

DRUGS (1)
  1. SCOPODERM TTS [Suspect]
     Active Substance: SCOPOLAMINE
     Dosage: UNK
     Route: 047
     Dates: start: 20140630

REACTIONS (2)
  - Mydriasis [Recovered/Resolved]
  - Accidental exposure to product [Unknown]

NARRATIVE: CASE EVENT DATE: 20140630
